FAERS Safety Report 10673933 (Version 1)
Quarter: 2014Q4

REPORT INFORMATION
  Report Type: Spontaneous
  Country: US (occurrence: US)
  Receive Date: 20141224
  Receipt Date: 20141224
  Transmission Date: 20150529
  Serious: No
  Sender: FDA-Public Use
  Company Number: US-SHIRE-US201408782

PATIENT
  Age: 2 Year
  Sex: Male
  Weight: 14.2 kg

DRUGS (1)
  1. ELAPRASE [Suspect]
     Active Substance: IDURSULFASE
     Indication: PRODUCT USED FOR UNKNOWN INDICATION
     Dosage: 12 MG, 1X/WEEK
     Route: 041

REACTIONS (2)
  - Blister [Unknown]
  - Skin irritation [Unknown]

NARRATIVE: CASE EVENT DATE: 20141117
